FAERS Safety Report 7519282-2 (Version None)
Quarter: 2011Q2

REPORT INFORMATION
  Report Type: 
  Country: None (occurrence: None)
  Receive Date: 20110602
  Receipt Date: 20110519
  Transmission Date: 20111010
  Serious: Yes (Other)
  Sender: FDA-Public Use
  Company Number: PHHY2011CA18345

PATIENT
  Sex: Female

DRUGS (12)
  1. VITAMIN D [Concomitant]
     Dosage: UNK
  2. EXJADE [Suspect]
     Dosage: 1650 MG, QD
     Route: 048
  3. LEVOTHYROXINE SODIUM [Concomitant]
     Dosage: 150 MG, QD
     Route: 048
  4. VENTOLIN [Concomitant]
  5. MAGNESIUM OXIDE [Concomitant]
  6. CALCIUM CARBONATE [Concomitant]
  7. EXJADE [Suspect]
     Indication: APLASTIC ANAEMIA
     Dosage: 1650 MG, QD
     Route: 048
     Dates: start: 20091001, end: 20110401
  8. ACTONEL [Concomitant]
     Dosage: 35 MG, UNK
     Route: 048
  9. ATROVENT [Concomitant]
     Dosage: UNK
  10. DESFERAL [Suspect]
     Route: 042
  11. METOPROLOL TARTRATE [Concomitant]
     Dosage: 12.5 MG, BID
     Route: 048
  12. LEVOTHYROXINE SODIUM [Concomitant]
     Dosage: 0.15 MG, QD
     Route: 048

REACTIONS (2)
  - VISUAL IMPAIRMENT [None]
  - DIARRHOEA [None]
